FAERS Safety Report 8053615-6 (Version None)
Quarter: 2012Q1

REPORT INFORMATION
  Report Type: 
  Country: None (occurrence: None)
  Receive Date: 20120118
  Receipt Date: 20120109
  Transmission Date: 20120608
  Serious: Yes (Hospitalization)
  Sender: FDA-Public Use
  Company Number: US-BAYER-2011-036914

PATIENT
  Age: 39 Year
  Sex: Female
  Weight: 77 kg

DRUGS (4)
  1. ACETAMINOPHEN [Concomitant]
     Dosage: UNK UNK, PRN
     Route: 048
  2. NEXIUM [Concomitant]
     Dosage: 40 MG, QD
     Route: 048
  3. YASMIN [Suspect]
     Indication: CONTRACEPTION
     Dosage: UNK
     Route: 048
     Dates: start: 20050701, end: 20060501
  4. PREDNISONE TAB [Concomitant]
     Indication: DERMATITIS CONTACT
     Route: 048

REACTIONS (5)
  - PAIN [None]
  - PULMONARY EMBOLISM [None]
  - ANXIETY [None]
  - EMOTIONAL DISTRESS [None]
  - INJURY [None]
